FAERS Safety Report 11846028 (Version 1)
Quarter: 2015Q4

REPORT INFORMATION
  Report Type: Spontaneous
  Country: US (occurrence: US)
  Receive Date: 20151217
  Receipt Date: 20151217
  Transmission Date: 20160305
  Serious: No
  Sender: FDA-Public Use
  Company Number: US-NOVOPROD-448520

PATIENT
  Age: 64 Year
  Sex: Male

DRUGS (1)
  1. LEVEMIR [Suspect]
     Active Substance: INSULIN DETEMIR
     Indication: TYPE 2 DIABETES MELLITUS
     Dosage: 35 U, QD IN AM
     Route: 058
     Dates: start: 201504

REACTIONS (10)
  - Agitation [Unknown]
  - Blood glucose increased [Unknown]
  - Speech disorder [Unknown]
  - Confusional state [Not Recovered/Not Resolved]
  - Gait disturbance [Not Recovered/Not Resolved]
  - Hypotension [Unknown]
  - Somnolence [Not Recovered/Not Resolved]
  - Blood glucose decreased [Not Recovered/Not Resolved]
  - Dysarthria [Unknown]
  - Dizziness [Not Recovered/Not Resolved]
